FAERS Safety Report 12260090 (Version 1)
Quarter: 2016Q2

REPORT INFORMATION
  Report Type: Spontaneous
  Country: US (occurrence: US)
  Receive Date: 20160412
  Receipt Date: 20160412
  Transmission Date: 20160815
  Serious: No
  Sender: FDA-Public Use
  Company Number: US-SA-2015SA148720

PATIENT
  Age: 7 Year
  Sex: Male

DRUGS (1)
  1. ALLEGRA [Suspect]
     Active Substance: FEXOFENADINE HYDROCHLORIDE
     Indication: HYPERSENSITIVITY
     Dosage: TAKEN FROM: 4-5 DAYS?DOSAGE: 1 TEASPOON
     Route: 048

REACTIONS (3)
  - Extra dose administered [Unknown]
  - Pyrexia [Unknown]
  - Oropharyngeal pain [Unknown]
